FAERS Safety Report 9765191 (Version 1)
Quarter: 2013Q4

REPORT INFORMATION
  Report Type: Spontaneous
  Country: US (occurrence: US)
  Receive Date: 20131217
  Receipt Date: 20131217
  Transmission Date: 20140711
  Serious: No
  Sender: FDA-Public Use
  Company Number: US-GLAXOSMITHKLINE-A1018416A

PATIENT
  Age: 58 Year
  Sex: Female

DRUGS (8)
  1. SORIATANE [Suspect]
     Indication: PUSTULAR PSORIASIS
     Dosage: 50MG TWICE PER DAY
     Route: 048
     Dates: start: 201210
  2. HUMIRA [Concomitant]
  3. CITALOPRAM [Concomitant]
  4. LOSARTAN [Concomitant]
  5. TRIAMCINOLONE [Concomitant]
  6. MUPIROCIN [Concomitant]
  7. CLOBETASOL [Concomitant]
  8. DESONIDE [Concomitant]

REACTIONS (4)
  - Sticky skin [Recovering/Resolving]
  - Chapped lips [Unknown]
  - Lip exfoliation [Unknown]
  - Lip pain [Unknown]
